FAERS Safety Report 6408245-6 (Version None)
Quarter: 2009Q4

REPORT INFORMATION
  Report Type: 
  Country: None (occurrence: None)
  Receive Date: 20091021
  Receipt Date: 20091009
  Transmission Date: 20100525
  Serious: Yes (Other)
  Sender: FDA-Public Use
  Company Number: FR-PFIZER INC-2009281027

PATIENT
  Age: 83 Year

DRUGS (3)
  1. AROMASINE [Suspect]
     Indication: BREAST CANCER METASTATIC
     Dosage: UNK
     Dates: start: 20090101
  2. LYRICA [Concomitant]
     Indication: NEUROPATHY PERIPHERAL
  3. ENDOXAN [Concomitant]
     Route: 048

REACTIONS (1)
  - ISCHAEMIC STROKE [None]
